FAERS Safety Report 8517610-2 (Version None)
Quarter: 2012Q3

REPORT INFORMATION
  Report Type: 
  Country: None (occurrence: None)
  Receive Date: 20120718
  Receipt Date: 20120608
  Transmission Date: 20120928
  Serious: Yes (Life-Threatening)
  Sender: FDA-Public Use
  Company Number: IT-ROCHE-1077023

PATIENT
  Sex: Male

DRUGS (8)
  1. LYRICA [Suspect]
     Indication: SUICIDE ATTEMPT
     Route: 048
     Dates: start: 20120523, end: 20120523
  2. TRAMADOL HCL [Suspect]
     Indication: SUICIDE ATTEMPT
     Route: 048
     Dates: start: 20120523, end: 20120523
  3. APIDRA [Suspect]
     Indication: SUICIDE ATTEMPT
     Route: 048
     Dates: start: 20120523, end: 20120523
  4. RAMIPRIL [Concomitant]
     Route: 048
  5. HUMALOG [Suspect]
     Indication: SUICIDE ATTEMPT
     Route: 058
     Dates: start: 20120523, end: 20120523
  6. DULOXETINE HYDROCHLORIDE [Suspect]
     Indication: SUICIDE ATTEMPT
     Route: 048
     Dates: start: 20120523, end: 20120523
  7. DEPAKENE [Suspect]
     Indication: SUICIDE ATTEMPT
     Route: 048
     Dates: start: 20120523, end: 20120523
  8. VALIUM [Suspect]
     Indication: SUICIDE ATTEMPT
     Route: 048
     Dates: start: 20120523, end: 20120523

REACTIONS (5)
  - BRADYPHRENIA [None]
  - HYPOGLYCAEMIA [None]
  - SOPOR [None]
  - BRADYKINESIA [None]
  - HYPOTENSION [None]
